FAERS Safety Report 5398799-3 (Version None)
Quarter: 2007Q3

REPORT INFORMATION
  Report Type: 
  Country: None (occurrence: None)
  Receive Date: 20070725
  Receipt Date: 20070725
  Transmission Date: 20080115
  Serious: Yes (Disabling)
  Sender: FDA-Public Use
  Company Number: None

PATIENT
  Sex: Female
  Weight: 136.0791 kg

DRUGS (1)
  1. AZITHROMYCIN [Suspect]
     Indication: PULMONARY CONGESTION
     Dosage: 500 MG  1 PER DAY
     Dates: start: 20070309, end: 20070316

REACTIONS (2)
  - AGEUSIA [None]
  - ANOSMIA [None]
